FAERS Safety Report 8303605-0 (Version None)
Quarter: 2012Q2

REPORT INFORMATION
  Report Type: 
  Country: None (occurrence: None)
  Receive Date: 20120423
  Receipt Date: 20120413
  Transmission Date: 20120825
  Serious: Yes (Death, Life-Threatening, Hospitalization)
  Sender: FDA-Public Use
  Company Number: JP-CELGENEUS-087-50794-12042112

PATIENT
  Sex: Male
  Weight: 60 kg

DRUGS (7)
  1. TORSEMIDE [Concomitant]
     Route: 065
     Dates: end: 20120212
  2. LANIRAPID [Concomitant]
     Route: 065
     Dates: end: 20120212
  3. BISOPROLOL FUMARATE [Concomitant]
     Route: 065
     Dates: end: 20120212
  4. ALLOPURINOL [Concomitant]
     Route: 065
     Dates: end: 20120212
  5. EXJADE [Concomitant]
     Route: 065
     Dates: end: 20120212
  6. VIDAZA [Suspect]
     Dosage: 75 MILLIGRAM/SQ. METER
     Route: 058
     Dates: start: 20111212, end: 20111218
  7. MAGMITT [Concomitant]
     Route: 065
     Dates: end: 20120212

REACTIONS (4)
  - NEUTROPHIL COUNT DECREASED [None]
  - PLATELET COUNT DECREASED [None]
  - CARDIAC FAILURE [None]
  - PNEUMONIA [None]
